FAERS Safety Report 8544392-0 (Version None)
Quarter: 2012Q3

REPORT INFORMATION
  Report Type: 
  Country: None (occurrence: None)
  Receive Date: 20120727
  Receipt Date: 20120717
  Transmission Date: 20120928
  Serious: Yes (Hospitalization, Other)
  Sender: FDA-Public Use
  Company Number: US-BAYER-2012-000094

PATIENT
  Age: 29 Year
  Sex: Female

DRUGS (3)
  1. YASMIN [Suspect]
     Dosage: UNK
     Dates: start: 20081001, end: 20081101
  2. MUSCLE RELAXANT [Concomitant]
     Dosage: UNK UNK, PRN
  3. IBUPROFEN [Concomitant]
     Dosage: UNK UNK, PRN

REACTIONS (2)
  - PULMONARY EMBOLISM [None]
  - THROMBOSIS [None]
